FAERS Safety Report 8803874 (Version 1)
Quarter: 2012Q4

REPORT INFORMATION
  Report Type: 
  Country: DE (occurrence: DE)
  Receive Date: 20120923
  Receipt Date: 20120923
  Transmission Date: 20130627
  Serious: Yes (Other)
  Sender: FDA-Public Use
  Company Number: DE-MERCK-1209DEU006350

PATIENT
  Age: 72 Year
  Sex: Male
  Weight: 96 kg

DRUGS (2)
  1. METFORMIN [Suspect]
     Indication: DIABETES MELLITUS
     Dosage: 50mg/1000mg, qd
     Route: 048
     Dates: start: 201109, end: 20120223
  2. REPAGLINIDE [Suspect]
     Indication: DIABETES MELLITUS
     Dosage: 4 mg, qd
     Route: 048
     Dates: start: 201109, end: 20120223

REACTIONS (2)
  - Alanine aminotransferase increased [Recovered/Resolved]
  - Gamma-glutamyltransferase increased [Recovered/Resolved]
